FAERS Safety Report 5332094-3 (Version None)
Quarter: 2007Q2

REPORT INFORMATION
  Report Type: 
  Country: None (occurrence: None)
  Receive Date: 20070521
  Receipt Date: 20060807
  Transmission Date: 20071010
  Serious: Yes (Hospitalization)
  Sender: FDA-Public Use
  Company Number: 6032551

PATIENT
  Age: 60 Year
  Sex: Male

DRUGS (1)
  1. RANITIDINE [Suspect]
     Indication: GASTROOESOPHAGEAL REFLUX DISEASE
     Dosage: 300,0000 MG (150MG,2 IN 1 D) (150 MG)

REACTIONS (3)
  - ASTHMA [None]
  - RHINITIS [None]
  - TYPE I HYPERSENSITIVITY [None]
